FAERS Safety Report 21666754 (Version 1)
Quarter: 2022Q4

REPORT INFORMATION
  Report Type: Spontaneous
  Country: JP (occurrence: JP)
  Receive Date: 20221201
  Receipt Date: 20221201
  Transmission Date: 20230112
  Serious: Yes (Hospitalization)
  Sender: FDA-Public Use
  Company Number: JP-MTPC-MTPC2022-0032553

PATIENT
  Age: 46 Year
  Sex: Male

DRUGS (1)
  1. REMICADE [Suspect]
     Active Substance: INFLIXIMAB
     Indication: Graft versus host disease
     Dosage: 5 MILLIGRAM/KILOGRAM
     Route: 041

REACTIONS (5)
  - Shock haemorrhagic [Unknown]
  - Duodenal perforation [Recovering/Resolving]
  - Abscess [Recovering/Resolving]
  - Therapeutic response decreased [Unknown]
  - Off label use [Unknown]
